FAERS Safety Report 13561006 (Version 1)
Quarter: 2017Q2

REPORT INFORMATION
  Report Type: Spontaneous
  Country: US (occurrence: US)
  Receive Date: 20170518
  Receipt Date: 20170518
  Transmission Date: 20170830
  Serious: Yes (Other)
  Sender: FDA-Public Use
  Company Number: US-ROCHE-1300733

PATIENT
  Sex: Female

DRUGS (7)
  1. NAPROSYN [Suspect]
     Active Substance: NAPROXEN
     Indication: PRODUCT USED FOR UNKNOWN INDICATION
     Route: 065
  2. VALPROATE [Concomitant]
     Active Substance: VALPROIC ACID
     Route: 065
  3. BENTYL [Concomitant]
     Active Substance: DICYCLOMINE HYDROCHLORIDE
  4. DIAZEPAM. [Concomitant]
     Active Substance: DIAZEPAM
     Route: 065
  5. NEXIUM [Concomitant]
     Active Substance: ESOMEPRAZOLE MAGNESIUM
  6. CELEBREX [Suspect]
     Active Substance: CELECOXIB
     Indication: OSTEOARTHRITIS
     Route: 065
     Dates: start: 20120425, end: 20120530
  7. PREDNISONE. [Concomitant]
     Active Substance: PREDNISONE
     Route: 065

REACTIONS (7)
  - Irritable bowel syndrome [Unknown]
  - Cholecystectomy [Unknown]
  - Blood cholesterol increased [Unknown]
  - Hypertension [Unknown]
  - Gastritis erosive [Unknown]
  - Inflammation [Unknown]
  - Pancreatitis [Unknown]
